FAERS Safety Report 4865114-0 (Version None)
Quarter: 2005Q4

REPORT INFORMATION
  Report Type: 
  Country: None (occurrence: None)
  Receive Date: 20051220
  Receipt Date: 20051220
  Transmission Date: 20060501
  Serious: No
  Sender: FDA-Public Use
  Company Number: None

PATIENT
  Age: 51 Year
  Sex: Female

DRUGS (1)
  1. ALBUMIN 5% IV, GRIFOLS BIOLOGICALS, INC. [Suspect]
     Indication: CARDIAC OPERATION
     Dosage: 250 ML ROUTE 042

REACTIONS (6)
  - BLOOD PRESSURE DECREASED [None]
  - HEART RATE INCREASED [None]
  - PHARMACEUTICAL PRODUCT COMPLAINT [None]
  - SHOCK [None]
  - VASODILATION PROCEDURE [None]
  - VENTRICULAR FIBRILLATION [None]
